FAERS Safety Report 24762983 (Version 2)
Quarter: 2025Q1

REPORT INFORMATION
  Report Type: Spontaneous
  Country: JP (occurrence: JP)
  Receive Date: 20241222
  Receipt Date: 20250127
  Transmission Date: 20250409
  Serious: No
  Sender: ARDELYX
  Company Number: JP-ARDELYX-2024ARDX008993

PATIENT
  Age: 7 Decade
  Sex: Male

DRUGS (1)
  1. TENAPANOR HYDROCHLORIDE [Suspect]
     Active Substance: TENAPANOR HYDROCHLORIDE
     Indication: Product used for unknown indication
     Route: 048

REACTIONS (1)
  - No adverse event [Unknown]
